FAERS Safety Report 18491523 (Version 1)
Quarter: 2020Q4

REPORT INFORMATION
  Report Type: Report from Study
  Country: US (occurrence: US)
  Receive Date: 20201111
  Receipt Date: 20201111
  Transmission Date: 20210114
  Serious: Yes (Other)
  Sender: FDA-Public Use
  Company Number: NVSC2020US294707

PATIENT
  Sex: Female

DRUGS (1)
  1. COSENTYX [Suspect]
     Active Substance: SECUKINUMAB
     Indication: ANKYLOSING SPONDYLITIS
     Dosage: UNK
     Route: 065
     Dates: start: 20160301

REACTIONS (6)
  - Injection site pain [Unknown]
  - Fatigue [Unknown]
  - Gait disturbance [Recovered/Resolved]
  - Ankylosing spondylitis [Unknown]
  - Arthralgia [Unknown]
  - Plantar fasciitis [Recovered/Resolved]
